FAERS Safety Report 17305090 (Version 1)
Quarter: 2020Q1

REPORT INFORMATION
  Report Type: Spontaneous
  Country: DE (occurrence: DE)
  Receive Date: 20200123
  Receipt Date: 20200123
  Transmission Date: 20200409
  Serious: Yes (Hospitalization, Other)
  Sender: FDA-Public Use
  Company Number: DE-ASTRAZENECA-2020SE07674

PATIENT
  Age: 56 Year
  Sex: Male
  Weight: 100 kg

DRUGS (1)
  1. FORXIGA [Suspect]
     Active Substance: DAPAGLIFLOZIN
     Indication: TYPE 2 DIABETES MELLITUS
     Dosage: 10 MG DAILY, 10 MG 1-0-0 SINCE YEARS
     Route: 048

REACTIONS (3)
  - Hyperglycaemic hyperosmolar nonketotic syndrome [Recovered/Resolved]
  - Diabetic ketoacidosis [Recovered/Resolved]
  - Abdominal pain upper [Unknown]

NARRATIVE: CASE EVENT DATE: 2019
